FAERS Safety Report 15277089 (Version 1)
Quarter: 2018Q4

REPORT INFORMATION
  Report Type: Spontaneous
  Country: PT (occurrence: PT)
  Receive Date: 20180814
  Receipt Date: 20180814
  Transmission Date: 20190204
  Serious: Yes (Other)
  Sender: FDA-Public Use
  Company Number: PT-SA-2018SA159913

PATIENT
  Age: 77 Year
  Sex: Male

DRUGS (4)
  1. DUTASTERIDE. [Suspect]
     Active Substance: DUTASTERIDE
     Dosage: UNK
  2. METFORMIN HYDROCHLORIDE;VILDAGLIPTIN [Suspect]
     Active Substance: METFORMIN HYDROCHLORIDE\VILDAGLIPTIN
  3. GLICLAZIDE [Suspect]
     Active Substance: GLICLAZIDE
     Dosage: UNK
  4. HYDROCHLOROTHIAZIDE/IRBESARTAN [Suspect]
     Active Substance: HYDROCHLOROTHIAZIDE\IRBESARTAN
     Dosage: UNK

REACTIONS (4)
  - Pemphigoid [Recovering/Resolving]
  - Hyponatraemia [Unknown]
  - Hyperglycaemia [Unknown]
  - Rash pruritic [Unknown]

NARRATIVE: CASE EVENT DATE: 201308
